FAERS Safety Report 9576918 (Version 2)
Quarter: 2013Q4

REPORT INFORMATION
  Report Type: Spontaneous
  Country: US (occurrence: US)
  Receive Date: 20131001
  Receipt Date: 20131009
  Transmission Date: 20140711
  Serious: No
  Sender: FDA-Public Use
  Company Number: US-BAXTER-2013BAX037146

PATIENT
  Age: 64 Year
  Sex: Female

DRUGS (9)
  1. GAMMAGARD LIQUID [Suspect]
     Indication: IMMUNODEFICIENCY COMMON VARIABLE
     Route: 042
     Dates: start: 20130916, end: 20130916
  2. GAMMAGARD LIQUID [Suspect]
     Route: 042
     Dates: start: 201210
  3. 5% DEXTROSE INJECTION [Suspect]
     Indication: CATHETER MANAGEMENT
     Dosage: 3-5 ML
     Route: 042
     Dates: start: 20130916, end: 20130916
  4. 5% DEXTROSE INJECTION [Suspect]
     Indication: CATHETER MANAGEMENT
  5. DIPHENHYDRAMINE [Concomitant]
     Indication: PREMEDICATION
     Route: 048
     Dates: start: 20130916, end: 20130916
  6. DIPHENHYDRAMINE [Concomitant]
     Indication: TREMOR
     Route: 048
     Dates: start: 20130916, end: 20130916
  7. DIPHENHYDRAMINE [Concomitant]
     Indication: CHILLS
  8. DIPHENHYDRAMINE [Concomitant]
     Indication: BLOOD PRESSURE INCREASED
  9. TYLENOL [Concomitant]
     Indication: PREMEDICATION
     Route: 048
     Dates: start: 20130916, end: 20130916

REACTIONS (3)
  - Chills [Unknown]
  - Tremor [Unknown]
  - Blood pressure increased [Recovered/Resolved]
